FAERS Safety Report 25927382 (Version 4)
Quarter: 2025Q4

REPORT INFORMATION
  Report Type: Spontaneous
  Country: US (occurrence: US)
  Receive Date: 20251015
  Receipt Date: 20251106
  Transmission Date: 20260117
  Serious: Yes (Other)
  Sender: BAUSCH AND LOMB
  Company Number: US-BAUSCHBL-2025BNL029965

PATIENT
  Age: 67 Year
  Sex: Female

DRUGS (2)
  1. BLINK NOURISH DRY EYE [Suspect]
     Active Substance: GLYCERIN
     Indication: Dry eye
     Dosage: 1-2 TIMES A DAY
     Dates: start: 202508, end: 202510
  2. BLINK NOURISH DRY EYE [Suspect]
     Active Substance: GLYCERIN

REACTIONS (2)
  - Product contamination microbial [Unknown]
  - Eye irritation [Recovered/Resolved]

NARRATIVE: CASE EVENT DATE: 20250101
